FAERS Safety Report 8809607 (Version 2)
Quarter: 2015Q2

REPORT INFORMATION
  Report Type: Report from Study
  Country: US (occurrence: US)
  Receive Date: 20120926
  Receipt Date: 20150408
  Transmission Date: 20150821
  Serious: Yes (Death)
  Sender: FDA-Public Use
  Company Number: US-ROCHE-1107373

PATIENT
  Age: 59 Year
  Sex: Female

DRUGS (10)
  1. ACETAMINOPHEN. [Concomitant]
     Active Substance: ACETAMINOPHEN
     Route: 048
  2. PERCOCET [Concomitant]
     Active Substance: ACETAMINOPHEN\OXYCODONE HYDROCHLORIDE
     Indication: BACK PAIN
  3. HERCEPTIN [Suspect]
     Active Substance: TRASTUZUMAB
     Indication: BREAST CANCER FEMALE
     Route: 042
     Dates: start: 20101104
  4. HERCEPTIN [Suspect]
     Active Substance: TRASTUZUMAB
     Route: 042
  5. PROCHLORPERAZINE. [Concomitant]
     Active Substance: PROCHLORPERAZINE
     Route: 048
  6. DECADRON [Concomitant]
     Active Substance: DEXAMETHASONE
  7. DIPHENHYDRAMINE [Concomitant]
     Active Substance: DIPHENHYDRAMINE
     Route: 042
  8. OXYCODONE/ACETAMINOPHEN [Concomitant]
     Active Substance: ACETAMINOPHEN\OXYCODONE HYDROCHLORIDE
     Route: 065
  9. PEPCID [Concomitant]
     Active Substance: FAMOTIDINE
  10. TAXOL [Concomitant]
     Active Substance: PACLITAXEL

REACTIONS (2)
  - Death [Fatal]
  - Back pain [Recovered/Resolved]

NARRATIVE: CASE EVENT DATE: 20101231
